FAERS Safety Report 18259123 (Version 3)
Quarter: 2022Q2

REPORT INFORMATION
  Report Type: Spontaneous
  Country: DE (occurrence: DE)
  Receive Date: 20200911
  Receipt Date: 20220406
  Transmission Date: 20220721
  Serious: Yes (Death, Life-Threatening, Hospitalization, Other)
  Sender: FDA-Public Use
  Company Number: DE-ALEXION-135950

PATIENT
  Age: 12 Year
  Sex: Female
  Weight: 38 kg

DRUGS (13)
  1. SOLIRIS [Suspect]
     Active Substance: ECULIZUMAB
     Indication: Neuromyelitis optica spectrum disorder
     Dosage: 600 MG, EVERY 4 WEEKS
     Route: 065
     Dates: start: 20180914
  2. BOSENTAN [Concomitant]
     Active Substance: BOSENTAN
     Indication: Product used for unknown indication
     Dosage: 3.6 MG/KG, QD (2X62.5 MG/DAY)
     Route: 065
  3. HYDROCHLOROTHIAZIDE\RAMIPRIL [Concomitant]
     Active Substance: HYDROCHLOROTHIAZIDE\RAMIPRIL
     Indication: Product used for unknown indication
     Dosage: 1.25 MG, QD
     Route: 065
  4. EISEN                              /00023501/ [Concomitant]
     Indication: Product used for unknown indication
     Dosage: 100 MG, QD (AB DEM 14.05. BEENDET)
     Route: 065
  5. FRUBIASE CALCIUM FORTE [Concomitant]
     Indication: Product used for unknown indication
     Dosage: 2 X 1 DRINK AMPOULES, QD
     Route: 065
  6. HYDROXYCHLOROQUINE [Concomitant]
     Active Substance: HYDROXYCHLOROQUINE
     Indication: Product used for unknown indication
     Dosage: 200 MG, QD
     Route: 065
  7. MYCOPHENOLATMOFETIL AL [Concomitant]
     Indication: Product used for unknown indication
     Dosage: 1000 MG, UNK
     Route: 065
  8. OMEPRAZOL                          /00661201/ [Concomitant]
     Indication: Product used for unknown indication
     Dosage: 20 MG, QD (AB APRIL BEENDET)
     Route: 065
  9. OXYGEN [Concomitant]
     Active Substance: OXYGEN
     Indication: Product used for unknown indication
     Dosage: 1.5 L/MIN FOR 16-6 HOURS
     Route: 045
  10. PENICILLIN V                       /00001801/ [Concomitant]
     Indication: Product used for unknown indication
     Dosage: 1000 IE, QD
     Route: 065
  11. POTASSIUM PHOSPHATE, MONOBASIC\SODIUM PHOSPHATE, DIBASIC, ANHYDROUS [Concomitant]
     Active Substance: POTASSIUM PHOSPHATE, MONOBASIC\SODIUM PHOSPHATE, DIBASIC, ANHYDROUS
     Indication: Product used for unknown indication
     Dosage: UNK, QD
     Route: 065
  12. SILDENAFIL [Concomitant]
     Active Substance: SILDENAFIL
     Indication: Product used for unknown indication
     Dosage: 2 MG/KG, QD (3 X 23 MG/DAY)
     Route: 065
  13. CHOLECALCIFEROL [Concomitant]
     Active Substance: CHOLECALCIFEROL
     Indication: Product used for unknown indication
     Dosage: 1000 IE, QD
     Route: 065

REACTIONS (5)
  - Meningococcal sepsis [Fatal]
  - Meningitis meningococcal [Unknown]
  - Systemic lupus erythematosus [Unknown]
  - Neuromyelitis optica spectrum disorder [Unknown]
  - Off label use [Unknown]

NARRATIVE: CASE EVENT DATE: 20200329
